FAERS Safety Report 4282836-3 (Version None)
Quarter: 2004Q1

REPORT INFORMATION
  Report Type: 
  Country: None (occurrence: None)
  Receive Date: 20040130
  Receipt Date: 20030523
  Transmission Date: 20041129
  Serious: No
  Sender: FDA-Public Use
  Company Number: US-BRISTOL-MYERS SQUIBB COMPANY-12284360

PATIENT
  Sex: Male
  Weight: 106 kg

DRUGS (1)
  1. SERZONE [Suspect]
     Indication: BIPOLAR DISORDER
     Dosage: TAKING FOR ^SEVERAL MONTHS^
     Route: 048

REACTIONS (4)
  - DIZZINESS [None]
  - LOSS OF CONSCIOUSNESS [None]
  - NAUSEA [None]
  - VISUAL DISTURBANCE [None]
